FAERS Safety Report 15994318 (Version 1)
Quarter: 2019Q1

REPORT INFORMATION
  Report Type: Spontaneous
  Country: AR (occurrence: AR)
  Receive Date: 20190222
  Receipt Date: 20190222
  Transmission Date: 20190418
  Serious: Yes (Hospitalization, Other)
  Sender: FDA-Public Use
  Company Number: AR-UCBSA-2019007134

PATIENT
  Age: 2 Year
  Sex: Female
  Weight: 14 kg

DRUGS (9)
  1. KEPPRA [Suspect]
     Active Substance: LEVETIRACETAM
     Indication: MYOCLONUS
  2. KEPPRA [Suspect]
     Active Substance: LEVETIRACETAM
     Dosage: ONE HOUR AND A HALF LATER ANOTHER DOSE ADMINISTERED
     Route: 048
     Dates: start: 201902, end: 201902
  3. KEPPRA [Suspect]
     Active Substance: LEVETIRACETAM
     Indication: OFF LABEL USE
     Dosage: 3.5 ML, 2X/DAY (BID)
     Route: 048
     Dates: start: 2019, end: 2019
  4. KEPPRA [Suspect]
     Active Substance: LEVETIRACETAM
     Dosage: 4.5 ML, 2X/DAY (BID)
     Route: 048
     Dates: start: 20190209
  5. KEPPRA [Suspect]
     Active Substance: LEVETIRACETAM
     Indication: PARTIAL SEIZURES
     Dosage: 100 MG/ML
     Route: 048
     Dates: start: 20190128, end: 2019
  6. VALPROIC ACID. [Suspect]
     Active Substance: VALPROIC ACID
     Indication: PRODUCT USED FOR UNKNOWN INDICATION
     Dosage: 3 ML, 2X/DAY (BID)
     Dates: start: 2019
  7. KEPPRA [Suspect]
     Active Substance: LEVETIRACETAM
     Indication: PARTIAL SEIZURES
     Dosage: UNK
     Route: 042
  8. KEPPRA [Suspect]
     Active Substance: LEVETIRACETAM
     Indication: MYOCLONUS
     Dosage: 2.5 ML, 2X/DAY (BID)
     Route: 048
     Dates: start: 2019, end: 2019
  9. KEPPRA [Suspect]
     Active Substance: LEVETIRACETAM
     Indication: OFF LABEL USE

REACTIONS (5)
  - Vomiting [Unknown]
  - Overdose [Unknown]
  - Drug ineffective [Unknown]
  - Off label use [Unknown]
  - Myoclonus [Unknown]

NARRATIVE: CASE EVENT DATE: 2019
